FAERS Safety Report 7005402-5 (Version None)
Quarter: 2010Q3

REPORT INFORMATION
  Report Type: 
  Country: None (occurrence: None)
  Receive Date: 20100921
  Receipt Date: 20100913
  Transmission Date: 20110219
  Serious: Yes (Hospitalization)
  Sender: FDA-Public Use
  Company Number: JP-ROCHE-715031

PATIENT
  Sex: Female
  Weight: 94 kg

DRUGS (22)
  1. ACTEMRA [Suspect]
     Indication: RHEUMATOID ARTHRITIS
     Route: 041
     Dates: start: 20081111, end: 20081111
  2. ACTEMRA [Suspect]
     Route: 041
     Dates: start: 20081210, end: 20081210
  3. ACTEMRA [Suspect]
     Route: 041
     Dates: start: 20090108, end: 20090108
  4. ACTEMRA [Suspect]
     Route: 041
     Dates: start: 20090205, end: 20090205
  5. ACTEMRA [Suspect]
     Route: 041
     Dates: start: 20090305, end: 20090305
  6. ACTEMRA [Suspect]
     Route: 041
     Dates: start: 20090402, end: 20090402
  7. ACTEMRA [Suspect]
     Route: 041
     Dates: start: 20090507, end: 20090507
  8. ACTEMRA [Suspect]
     Route: 041
     Dates: start: 20090604, end: 20090604
  9. ACTEMRA [Suspect]
     Route: 041
     Dates: start: 20091028
  10. PREDNISOLONE [Suspect]
     Indication: RHEUMATOID ARTHRITIS
     Route: 048
     Dates: start: 20100414
  11. METOLATE [Suspect]
     Indication: RHEUMATOID ARTHRITIS
     Route: 048
     Dates: start: 20090604
  12. ISCOTIN [Concomitant]
     Route: 048
     Dates: start: 20080807
  13. LOXOPROFEN SODIUM [Concomitant]
     Dosage: DRUG REPORTED AS THREENOFEN(LOXOPROFEN SODIUM), NOTE: 120-180MG/DAY
     Route: 048
  14. MUCOSTA [Concomitant]
     Route: 048
  15. SINGULAIR [Concomitant]
     Route: 048
  16. DICLOFENAC SODIUM [Concomitant]
     Dosage: DRUG REPORTED AS FENYTAREN(DICLOFENAC SODIUM)
     Route: 054
  17. PREDONINE [Concomitant]
     Route: 048
  18. FOLIAMIN [Concomitant]
     Route: 048
     Dates: start: 20090604
  19. HOKUNALIN [Concomitant]
     Dosage: FORM: TAPE
     Route: 061
     Dates: start: 20091120
  20. UNIPHYL [Concomitant]
     Dosage: DRUG REPORTED AS UNIPHYL LA(THEOPHYLLINE)
     Route: 048
     Dates: start: 20090604
  21. BLINDED OCRELIZUMAB [Concomitant]
     Dosage: NOTE: DOSAGE WAS UNCERTAIN.
     Route: 041
     Dates: start: 20090901, end: 20090901
  22. BLINDED OCRELIZUMAB [Concomitant]
     Dosage: NOTE: DOSAGE WAS UNCERTAIN.
     Route: 041
     Dates: start: 20090915, end: 20090915

REACTIONS (1)
  - GASTROENTERITIS [None]
